FAERS Safety Report 5625733-0 (Version None)
Quarter: 2008Q1

REPORT INFORMATION
  Report Type: 
  Country: None (occurrence: None)
  Receive Date: 20080207
  Receipt Date: 20080207
  Transmission Date: 20080703
  Serious: Yes (Other)
  Sender: FDA-Public Use
  Company Number: None

PATIENT
  Age: 47 Year
  Sex: Male
  Weight: 90.7194 kg

DRUGS (2)
  1. INTRON A [Suspect]
     Dosage: 3,000,000IU 3 TIMES A WEEK IM
     Route: 030
     Dates: start: 20010507, end: 20011116
  2. RIBAVIRIN [Suspect]
     Dosage: 800MG ONCE DAILY PO
     Route: 048
     Dates: start: 20010507, end: 20011116

REACTIONS (6)
  - ASTHENIA [None]
  - DEPRESSION [None]
  - FATIGUE [None]
  - IMPAIRED WORK ABILITY [None]
  - INSOMNIA [None]
  - NO THERAPEUTIC RESPONSE [None]
